FAERS Safety Report 10226443 (Version 1)
Quarter: 2014Q2

REPORT INFORMATION
  Report Type: Spontaneous
  Country: US (occurrence: US)
  Receive Date: 20140609
  Receipt Date: 20140609
  Transmission Date: 20141212
  Serious: No
  Sender: FDA-Public Use
  Company Number: US-AMGEN INC.-USASP2013083424

PATIENT
  Age: 51 Year
  Sex: Male

DRUGS (1)
  1. EPOGEN [Suspect]
     Indication: RENAL FAILURE CHRONIC
     Dosage: 8000 UNIT, 3 TIMES/WK
     Route: 065

REACTIONS (2)
  - Drug effect decreased [Unknown]
  - Dyslexia [Unknown]
